FAERS Safety Report 20078250 (Version 1)
Quarter: 2021Q4

REPORT INFORMATION
  Report Type: Spontaneous
  Country: US (occurrence: US)
  Receive Date: 20211117
  Receipt Date: 20211117
  Transmission Date: 20220304
  Serious: No
  Sender: FDA-Public Use
  Company Number: US-NOVARTISTESTPH-NVSC2021US262236

PATIENT
  Sex: Male

DRUGS (1)
  1. ZIEXTENZO [Suspect]
     Active Substance: PEGFILGRASTIM-BMEZ
     Indication: Product used for unknown indication
     Dosage: 6 MG AFTER CHEMO
     Route: 065

REACTIONS (5)
  - Acne [Unknown]
  - Abdominal pain upper [Unknown]
  - Rash [Unknown]
  - Needle issue [Unknown]
  - Product dose omission issue [Unknown]
